FAERS Safety Report 9344837 (Version 1)
Quarter: 2013Q2

REPORT INFORMATION
  Report Type: Spontaneous
  Country: DE (occurrence: DE)
  Receive Date: 20130612
  Receipt Date: 20130612
  Transmission Date: 20140414
  Serious: Yes (Other)
  Sender: FDA-Public Use
  Company Number: DE-PFIZER INC-2013172590

PATIENT
  Age: 57 Year
  Sex: Female

DRUGS (3)
  1. DOXORUBICIN HCL [Suspect]
     Indication: CHEMOTHERAPY
     Dosage: SIX CYCLES
  2. CISPLATIN [Suspect]
     Indication: CHEMOTHERAPY
     Dosage: SIX CYCLES
  3. PACLITAXEL [Suspect]
     Indication: CHEMOTHERAPY
     Dosage: SIX CYCLES

REACTIONS (4)
  - Polyneuropathy [Unknown]
  - Diarrhoea [Unknown]
  - Hypertension [Unknown]
  - Autoantibody positive [Recovering/Resolving]
